FAERS Safety Report 4995633-8 (Version None)
Quarter: 2006Q2

REPORT INFORMATION
  Report Type: 
  Country: None (occurrence: None)
  Receive Date: 20060504
  Receipt Date: 20060423
  Transmission Date: 20061013
  Serious: Yes (Other)
  Sender: FDA-Public Use
  Company Number: 2006054790

PATIENT
  Age: 56 Year
  Sex: Male

DRUGS (4)
  1. ZITHROMAX [Suspect]
     Indication: BACTERIAL INFECTION
     Dosage: 250 MG
     Dates: start: 20060419, end: 20060401
  2. METHYLPREDNISOLONE [Suspect]
     Indication: ILL-DEFINED DISORDER
     Dates: start: 20060422
  3. TESSALON [Concomitant]
  4. AVANDIA (ROSIGILITAZONE MALEATE) [Concomitant]

REACTIONS (2)
  - DEAFNESS [None]
  - NASOPHARYNGITIS [None]
